FAERS Safety Report 9123128 (Version 2)
Quarter: 2013Q1

REPORT INFORMATION
  Report Type: Spontaneous
  Country: GB (occurrence: GB)
  Receive Date: 20130227
  Receipt Date: 20130306
  Transmission Date: 20140127
  Serious: Yes (Other)
  Sender: FDA-Public Use
  Company Number: GB-JNJFOC-20130214200

PATIENT
  Sex: Female

DRUGS (6)
  1. DOXORUBICIN [Suspect]
     Indication: SARCOMA
     Dosage: ADMINISTERTED OVER 2 DAYS FOR 14 DAY CYCLE
     Route: 042
  2. VINCRISTINE [Suspect]
     Indication: SARCOMA
     Dosage: 1.4 MG/M2, MAXIMUN 2 MG, ADMINISTERTED OVER 2 DAYS OF 14 DAY CYCLE
     Route: 065
  3. CYCLOPHOSPHAMIDE [Suspect]
     Indication: SARCOMA
     Dosage: ADMINISTERTED OVER 2 DAYS OF 14 DAY CYCLE
     Route: 065
  4. IFOSFAMIDE [Suspect]
     Indication: SARCOMA
     Dosage: FRACTIONATED OVER 5 DAYS, 14 DAYS CYCLE
     Route: 065
  5. ETOPOSIDE [Suspect]
     Indication: SARCOMA
     Dosage: FRACTIONATED OVER 5 DAYS, 14 DAYS CYCLE
     Route: 065
  6. GRANULOCYTE COLONY-STIMULATING FACTOR (GCSF) [Concomitant]
     Indication: PALLIATIVE CARE
     Dosage: GIVEN WITHIN 72 HOURS OF LAST CHEMOTHERAPY
     Route: 065

REACTIONS (3)
  - Haematotoxicity [Unknown]
  - Gastrointestinal toxicity [Unknown]
  - Off label use [Recovered/Resolved]
